FAERS Safety Report 9394572 (Version 1)
Quarter: 2013Q3

REPORT INFORMATION
  Report Type: Report from Study
  Country: NL (occurrence: NL)
  Receive Date: 20130711
  Receipt Date: 20130711
  Transmission Date: 20140515
  Serious: Yes (Hospitalization)
  Sender: FDA-Public Use
  Company Number: PHHY2013NL073280

PATIENT
  Sex: Female

DRUGS (3)
  1. ZOMETA [Suspect]
     Indication: BREAST CANCER METASTATIC
     Dosage: 4 MG/ 100 ML, ONCE EVERY 4 WEEKS
     Route: 042
  2. ZOMETA [Suspect]
     Dosage: 4 MG/ 100 ML, ONCE EVERY 4 WEEKS
     Route: 042
     Dates: start: 20130208
  3. ZOMETA [Suspect]
     Dosage: 4 MG/ 100 ML, ONCE EVERY 4 WEEKS
     Route: 042
     Dates: start: 20130607

REACTIONS (2)
  - Eye disorder [Unknown]
  - Visual impairment [Unknown]
